FAERS Safety Report 5776456-9 (Version None)
Quarter: 2008Q2

REPORT INFORMATION
  Report Type: 
  Country: None (occurrence: None)
  Receive Date: 20080618
  Receipt Date: 20080610
  Transmission Date: 20081010
  Serious: Yes (Life-Threatening, Other)
  Sender: FDA-Public Use
  Company Number: US-AMGEN-US268647

PATIENT
  Sex: Female
  Weight: 81.7 kg

DRUGS (9)
  1. PROCRIT [Suspect]
     Indication: PREOPERATIVE CARE
     Route: 058
     Dates: start: 20080129, end: 20080212
  2. ANTIHYPERTENSIVE MEDICATION NOS [Concomitant]
  3. LIPITOR [Concomitant]
  4. ACTONEL [Concomitant]
  5. ENALAPRIL MALEATE [Concomitant]
  6. DILTIAZEM [Concomitant]
  7. ASPIRIN [Concomitant]
  8. OMEPRAZOLE [Concomitant]
  9. DYAZIDE [Concomitant]

REACTIONS (3)
  - ANGINA PECTORIS [None]
  - LABORATORY TEST ABNORMAL [None]
  - MUSCULOSKELETAL CHEST PAIN [None]
